FAERS Safety Report 21857854 (Version 3)
Quarter: 2023Q1

REPORT INFORMATION
  Report Type: Report from Study
  Country: US (occurrence: US)
  Receive Date: 20230113
  Receipt Date: 20230203
  Transmission Date: 20230417
  Serious: No
  Sender: FDA-Public Use
  Company Number: US-002147023-NVSC2023US007579

PATIENT
  Sex: Male

DRUGS (5)
  1. KESIMPTA [Suspect]
     Active Substance: OFATUMUMAB
     Indication: Multiple sclerosis
     Dosage: UNK
     Route: 065
     Dates: start: 20230104
  2. KESIMPTA [Suspect]
     Active Substance: OFATUMUMAB
     Dosage: 20 MG, QMO (INJECT 1 PEN  MONTHLY STARTING AT WEEK 4 AS DIRECTED)
     Route: 058
  3. PRENATAL S [Concomitant]
     Indication: Product used for unknown indication
     Dosage: UNK
     Route: 065
  4. MONO LINYAH [Concomitant]
     Indication: Product used for unknown indication
     Dosage: UNK
     Route: 065
  5. SERTRALINE HYDROCHLORIDE [Concomitant]
     Active Substance: SERTRALINE HYDROCHLORIDE
     Indication: Product used for unknown indication
     Dosage: UNK
     Route: 065

REACTIONS (7)
  - Influenza like illness [Unknown]
  - Chills [Unknown]
  - Pain [Unknown]
  - Fatigue [Unknown]
  - Oropharyngeal pain [Unknown]
  - Dry throat [Unknown]
  - Alopecia [Not Recovered/Not Resolved]
